FAERS Safety Report 8541707-4 (Version None)
Quarter: 2012Q3

REPORT INFORMATION
  Report Type: 
  Country: None (occurrence: None)
  Receive Date: 20120726
  Receipt Date: 20120719
  Transmission Date: 20120928
  Serious: Yes (Other)
  Sender: FDA-Public Use
  Company Number: PHHY2012DE062112

PATIENT
  Age: 53 Year
  Sex: Female

DRUGS (7)
  1. LOPINAVIR [Concomitant]
     Indication: RENAL TRANSPLANT
  2. INSULIN [Concomitant]
  3. RITONAVIR [Concomitant]
     Indication: RENAL TRANSPLANT
  4. MYCOPHENOLATE MOFETIL [Concomitant]
     Indication: RENAL TRANSPLANT
  5. EVEROLIMUS [Suspect]
     Indication: RENAL TRANSPLANT
  6. LAMIVUDINE [Concomitant]
     Indication: RENAL TRANSPLANT
  7. ZIDOVUDINE [Concomitant]
     Indication: RENAL TRANSPLANT

REACTIONS (7)
  - OEDEMA PERIPHERAL [None]
  - LYMPHOEDEMA [None]
  - VENA CAVA THROMBOSIS [None]
  - VENOUS THROMBOSIS [None]
  - SUBCLAVIAN VEIN THROMBOSIS [None]
  - BREAST SWELLING [None]
  - ERYTHEMA [None]
